FAERS Safety Report 18035275 (Version 1)
Quarter: 2020Q3

REPORT INFORMATION
  Report Type: Spontaneous
  Country: US (occurrence: US)
  Receive Date: 20200716
  Receipt Date: 20200716
  Transmission Date: 20201103
  Serious: Yes (Hospitalization, Disabling)
  Sender: FDA-Public Use
  Company Number: None

PATIENT
  Age: 66 Year
  Sex: Female
  Weight: 55.34 kg

DRUGS (18)
  1. ZYRTEC [Concomitant]
     Active Substance: CETIRIZINE HYDROCHLORIDE
  2. INHALER [Concomitant]
     Active Substance: UNSPECIFIED INGREDIENT
  3. GAS [Concomitant]
  4. DESCONGESTANT [Concomitant]
  5. PROLIA [Suspect]
     Active Substance: DENOSUMAB
     Indication: OSTEOPOROSIS
     Dosage: ?          OTHER FREQUENCY:2X YEAR;OTHER ROUTE:INJECTION?
     Dates: start: 2019, end: 202007
  6. THYROID [Concomitant]
     Active Substance: LEVOTHYROXINE\LIOTHYRONINE
  7. XANAX [Concomitant]
     Active Substance: ALPRAZOLAM
  8. PEPCID [Concomitant]
     Active Substance: FAMOTIDINE
  9. MYLANTA [Concomitant]
     Active Substance: ALUMINUM HYDROXIDE\DIMETHICONE\MAGNESIUM HYDROXIDE
  10. MUCINEX [Concomitant]
     Active Substance: GUAIFENESIN
  11. PATOPRAZONE [Concomitant]
  12. IBUPROFEN. [Concomitant]
     Active Substance: IBUPROFEN
  13. PROZAC [Concomitant]
     Active Substance: FLUOXETINE HYDROCHLORIDE
  14. ATENOLOL. [Concomitant]
     Active Substance: ATENOLOL
  15. AMOXICILLIN. [Concomitant]
     Active Substance: AMOXICILLIN
  16. BISMUTH. [Concomitant]
     Active Substance: BISMUTH
  17. FLONASE [Concomitant]
     Active Substance: FLUTICASONE PROPIONATE
  18. MELATONIN [Concomitant]
     Active Substance: MELATONIN

REACTIONS (11)
  - Upper respiratory tract infection [None]
  - Headache [None]
  - Infection [None]
  - Back pain [None]
  - Panic attack [None]
  - Gastrooesophageal reflux disease [None]
  - Nausea [None]
  - Dyspnoea [None]
  - Palpitations [None]
  - Sinus disorder [None]
  - Dizziness [None]

NARRATIVE: CASE EVENT DATE: 202003
